FAERS Safety Report 16766361 (Version 1)
Quarter: 2019Q3

REPORT INFORMATION
  Report Type: Spontaneous
  Country: US (occurrence: US)
  Receive Date: 20190903
  Receipt Date: 20190903
  Transmission Date: 20191005
  Serious: No
  Sender: FDA-Public Use
  Company Number: US-ANIPHARMA-2019-US-009883

PATIENT
  Age: 70 Year
  Sex: Female
  Weight: 51.26 kg

DRUGS (9)
  1. ANASTROZOLE. [Suspect]
     Active Substance: ANASTROZOLE
     Indication: BREAST CANCER
     Dosage: 1MG/DAY
     Route: 048
     Dates: start: 201611, end: 20190516
  2. OMEGA 3 [Concomitant]
     Active Substance: OMEGA-3 FATTY ACIDS
  3. MULTIVITAMIN [Concomitant]
     Active Substance: VITAMINS
  4. VITAMIN B COMPLEX [Concomitant]
     Active Substance: CYANOCOBALAMIN\DEXPANTHENOL\NIACINAMIDE\PYRIDOXINE HYDROCHLORIDE\RIBOFLAVIN 5^-PHOSPHATE SODIUM\THIAMINE HYDROCHLORIDE\VITAMIN B COMPLEX
  5. PLAVIX [Suspect]
     Active Substance: CLOPIDOGREL BISULFATE
     Dates: start: 201712
  6. VITAMIN D3 [Suspect]
     Active Substance: CHOLECALCIFEROL
     Dosage: DAILY
     Dates: start: 201804
  7. PAXIL [Suspect]
     Active Substance: PAROXETINE HYDROCHLORIDE
     Dates: start: 201802, end: 201804
  8. CALCIUM [Concomitant]
     Active Substance: CALCIUM
  9. PRAVACHOL [Suspect]
     Active Substance: PRAVASTATIN SODIUM
     Dates: start: 201712

REACTIONS (8)
  - Blood cholesterol increased [Unknown]
  - Glaucoma [Unknown]
  - Paraesthesia [Recovered/Resolved]
  - Blood pressure increased [Unknown]
  - Cataract [Recovered/Resolved]
  - Depression [Recovered/Resolved]
  - Insomnia [Recovered/Resolved]
  - Hot flush [Recovered/Resolved]

NARRATIVE: CASE EVENT DATE: 201712
